FAERS Safety Report 4350602-6 (Version None)
Quarter: 2004Q2

REPORT INFORMATION
  Report Type: 
  Country: None (occurrence: None)
  Receive Date: 20040427
  Receipt Date: 20040414
  Transmission Date: 20050107
  Serious: Yes (Hospitalization)
  Sender: FDA-Public Use
  Company Number: 04P-056-0257795-00

PATIENT
  Age: 53 Year
  Sex: Female
  Weight: 94 kg

DRUGS (5)
  1. HUMIRA [Suspect]
     Indication: RHEUMATOID ARTHRITIS
     Dosage: 1 IN 1 WK, SUBCUTANEOUS
     Route: 058
     Dates: start: 20030530, end: 20040301
  2. PREDNISONE [Concomitant]
  3. ACUILIX [Concomitant]
  4. CITALOPRAM [Concomitant]
  5. LEVOTHYROXINE SODIUM [Concomitant]

REACTIONS (4)
  - DIABETES MELLITUS [None]
  - LOCALISED INFECTION [None]
  - PHLEBITIS [None]
  - PULMONARY EMBOLISM [None]
